FAERS Safety Report 19951739 (Version 8)
Quarter: 2024Q4

REPORT INFORMATION
  Report Type: Report from Study
  Country: JP (occurrence: JP)
  Receive Date: 20211013
  Receipt Date: 20241021
  Transmission Date: 20250115
  Serious: Yes (Hospitalization)
  Sender: ABBVIE
  Company Number: JP-ABBVIE-21K-087-4117907-00

PATIENT
  Age: 71 Year
  Sex: Male
  Weight: 62 kg

DRUGS (2)
  1. RINVOQ [Suspect]
     Active Substance: UPADACITINIB
     Indication: Rheumatoid arthritis
     Route: 048
     Dates: start: 20210115, end: 20210921
  2. PREDNISOLONE [Concomitant]
     Active Substance: PREDNISOLONE
     Indication: Rheumatoid arthritis

REACTIONS (2)
  - Sepsis [Recovered/Resolved]
  - Gastric cancer [Recovering/Resolving]

NARRATIVE: CASE EVENT DATE: 20210922
